FAERS Safety Report 6564765-5 (Version None)
Quarter: 2010Q1

REPORT INFORMATION
  Report Type: 
  Country: None (occurrence: None)
  Receive Date: 20100201
  Receipt Date: 20100122
  Transmission Date: 20100710
  Serious: Yes (Hospitalization)
  Sender: FDA-Public Use
  Company Number: US-BAYER-201011142NA

PATIENT
  Age: 71 Year
  Sex: Male
  Weight: 77 kg

DRUGS (32)
  1. SORAFENIB [Suspect]
     Indication: COLON CANCER
     Dosage: UNIT DOSE: 200 MG
     Route: 048
     Dates: start: 20091215, end: 20100112
  2. OXALIPLATIN [Suspect]
     Indication: COLON CANCER
     Dosage: UNIT DOSE: 85 MG/M2
     Dates: start: 20091215, end: 20091215
  3. OXALIPLATIN [Suspect]
     Dosage: UNIT DOSE: 85 MG/M2
     Dates: start: 20091229, end: 20091229
  4. LEUCOVORIN CALCIUM [Suspect]
     Indication: COLON CANCER
     Dosage: UNIT DOSE: 400 MG/M2
     Dates: start: 20091215, end: 20091215
  5. LEUCOVORIN CALCIUM [Suspect]
     Dosage: UNIT DOSE: 400 MG/M2
     Dates: start: 20091229, end: 20091229
  6. 5 FU [Suspect]
     Indication: COLON CANCER
     Dosage: UNIT DOSE: 1200 MG/M2
     Route: 042
     Dates: start: 20091215
  7. 5 FU [Suspect]
     Dosage: UNIT DOSE: 1200 MG/M2
     Route: 042
     Dates: start: 20091229
  8. 5 FU [Suspect]
     Dosage: UNIT DOSE: 400 MG/M2
     Route: 040
     Dates: start: 20091215, end: 20091215
  9. 5 FU [Suspect]
     Dosage: UNIT DOSE: 400 MG/M2
     Route: 040
     Dates: start: 20091229, end: 20091229
  10. AVASTIN [Suspect]
     Indication: COLON CANCER
     Dosage: UNIT DOSE: 5 MG/KG
     Dates: start: 20091229, end: 20091229
  11. AVASTIN [Suspect]
     Dosage: UNIT DOSE: 5 MG/KG
     Dates: start: 20091215, end: 20091215
  12. PROBENECID [Concomitant]
     Dosage: BID PRN
     Route: 048
     Dates: start: 20041201
  13. NITROGLYCERIN [Concomitant]
     Indication: CHEST PAIN
     Dosage: Q 5 MINUTES PRN X 3
     Route: 060
     Dates: start: 20071201
  14. ACETAMINOPHEN AND HYDROCODONE BITARTRATE [Concomitant]
     Indication: PAIN
     Dosage: BID PRN
     Route: 048
     Dates: start: 20071201
  15. ALPRAZOLAM [Concomitant]
     Route: 048
     Dates: start: 20091101
  16. ALPRAZOLAM [Concomitant]
     Route: 048
  17. ALPRAZOLAM [Concomitant]
     Dosage: TOTAL DAILY DOSE: 1 MG
     Route: 048
  18. DIOVAN HCT [Concomitant]
     Dosage: AS USED: 320/25 MG
     Route: 048
  19. HYDRALAZINE HCT [Concomitant]
     Dosage: TOTAL DAILY DOSE: 50 MG
     Route: 048
     Dates: start: 20061201
  20. ATORVASTATIN CALCIUM [Concomitant]
     Dosage: TOTAL DAILY DOSE: 40 MG
     Route: 048
     Dates: start: 20061201
  21. CLOPIDOGREL BISULFATE [Concomitant]
     Dosage: TOTAL DAILY DOSE: 75 MG
     Route: 048
     Dates: start: 20061201
  22. CARISOPRODOL [Concomitant]
     Dosage: TOTAL DAILY DOSE: 350 MG
     Route: 048
     Dates: start: 20061201
  23. MS CONTIN [Concomitant]
     Dosage: TOTAL DAILY DOSE: 30 MG
     Route: 048
  24. LORTAB [Concomitant]
     Indication: PAIN
     Dosage: Q 6 HOURS PRN
     Route: 048
  25. IMDUR [Concomitant]
     Dosage: TOTAL DAILY DOSE: 40 MG
     Route: 048
  26. SOMA [Concomitant]
     Dosage: TID PRN
     Route: 048
  27. ZOFRAN [Concomitant]
     Indication: NAUSEA
     Dosage: Q 4 HOURS PRN FOR NAUSEA AND VOMITING
     Route: 042
  28. MEGACE [Concomitant]
     Dosage: TOTAL DAILY DOSE: 20 ML
     Route: 048
  29. ASPIRIN [Concomitant]
     Dosage: TOTAL DAILY DOSE: 81 MG
     Route: 048
  30. INDOMETHACIN [Concomitant]
  31. HYDRALAZINE [Concomitant]
     Dosage: TOTAL DAILY DOSE: 50 MG
     Route: 048
  32. VALSARTAN [Concomitant]
     Dosage: TOTAL DAILY DOSE: 160 MG
     Route: 048
     Dates: start: 20041201

REACTIONS (4)
  - DEHYDRATION [None]
  - DIARRHOEA [None]
  - GASTROENTERITIS [None]
  - RENAL FAILURE ACUTE [None]
